FAERS Safety Report 4298659-5 (Version None)
Quarter: 2004Q1

REPORT INFORMATION
  Report Type: 
  Country: None (occurrence: None)
  Receive Date: 20040218
  Receipt Date: 20030703
  Transmission Date: 20041129
  Serious: No
  Sender: FDA-Public Use
  Company Number: US-GLAXOSMITHKLINE-A0415215A

PATIENT
  Age: 27 Year
  Sex: Male

DRUGS (2)
  1. PAXIL [Suspect]
     Indication: DEPRESSION
     Route: 048
     Dates: end: 20030629
  2. WELLBUTRIN SR [Concomitant]

REACTIONS (4)
  - ABNORMAL DREAMS [None]
  - NAUSEA [None]
  - PARAESTHESIA [None]
  - TINNITUS [None]
